FAERS Safety Report 4657867-1 (Version None)
Quarter: 2005Q2

REPORT INFORMATION
  Report Type: 
  Country: None (occurrence: None)
  Receive Date: 20050510
  Receipt Date: 20050407
  Transmission Date: 20051028
  Serious: Yes (Death, Hospitalization)
  Sender: FDA-Public Use
  Company Number: PHEH2005US04105

PATIENT
  Age: 58 Year
  Sex: Female
  Weight: 106 kg

DRUGS (9)
  1. TRILEPTAL [Suspect]
     Indication: BIPOLAR DISORDER
     Dosage: 600 MG, BID
     Route: 048
     Dates: start: 20040901
  2. TRILEPTAL [Suspect]
     Dosage: 48000 MG, ONCE/SINGLE
  3. PROZAC [Concomitant]
     Indication: BIPOLAR DISORDER
     Dosage: 20 MG, QD
     Dates: start: 20041001
  4. BUSPAR [Concomitant]
     Indication: BIPOLAR DISORDER
     Dosage: 30 MG, BID
     Route: 048
     Dates: start: 20041001
  5. RISPERDAL [Concomitant]
     Indication: BIPOLAR DISORDER
     Dosage: 6 MG, QHS
     Route: 048
     Dates: start: 20040201
  6. AVANDIA [Concomitant]
     Indication: DIABETES MELLITUS NON-INSULIN-DEPENDENT
     Dosage: 4 MG, QD
     Route: 048
     Dates: start: 20040201
  7. METAMUCIL-2 [Concomitant]
     Indication: CONSTIPATION
     Dosage: 2 TSP, QD
     Route: 048
     Dates: start: 20040201
  8. PREVACID [Concomitant]
     Indication: GASTROOESOPHAGEAL REFLUX DISEASE
     Dosage: 30 MG, QD
     Route: 048
     Dates: start: 20040201
  9. VITAMIN B12 FOR INJECTION [Concomitant]
     Dosage: 1 ML, QMO
     Route: 030
     Dates: start: 20041001

REACTIONS (14)
  - CARDIAC ARREST [None]
  - COMA [None]
  - EJECTION FRACTION DECREASED [None]
  - ELECTROENCEPHALOGRAM ABNORMAL [None]
  - ENCEPHALOPATHY [None]
  - GASTRIC LAVAGE [None]
  - GENERAL PHYSICAL HEALTH DETERIORATION [None]
  - GRAND MAL CONVULSION [None]
  - INTENTIONAL MISUSE [None]
  - INTUBATION [None]
  - LIFE SUPPORT [None]
  - MYOCARDIAL INFARCTION [None]
  - OVERDOSE [None]
  - RESPIRATORY FAILURE [None]
